FAERS Safety Report 25538441 (Version 1)
Quarter: 2025Q3

REPORT INFORMATION
  Report Type: Spontaneous
  Country: EU (occurrence: EU)
  Receive Date: 20250710
  Receipt Date: 20250710
  Transmission Date: 20251020
  Serious: Yes (Life-Threatening)
  Sender: MACLEODS
  Company Number: EU-MACLEODS PHARMA-MAC2025053961

PATIENT

DRUGS (2)
  1. ESCITALOPRAM [Suspect]
     Active Substance: ESCITALOPRAM OXALATE
     Indication: Depression
     Route: 048
  2. RABEPRAZOLE [Concomitant]
     Active Substance: RABEPRAZOLE
     Indication: Gastritis
     Route: 065

REACTIONS (5)
  - Sinus bradycardia [Recovered/Resolved]
  - Respiratory failure [Recovered/Resolved]
  - Loss of consciousness [Recovered/Resolved]
  - Cerebral hypoperfusion [Recovered/Resolved]
  - Condition aggravated [Recovered/Resolved]
